FAERS Safety Report 4842815-1 (Version None)
Quarter: 2005Q4

REPORT INFORMATION
  Report Type: 
  Country: None (occurrence: None)
  Receive Date: 20051129
  Receipt Date: 20051109
  Transmission Date: 20060501
  Serious: Yes (Other)
  Sender: FDA-Public Use
  Company Number: ES200511001303

PATIENT
  Age: 52 Year
  Sex: Female

DRUGS (1)
  1. OPTRUMA (RALOXIFENE HYDROCHLORIDE) TABLET [Suspect]
     Dosage: 60 MG, DAILY (1/D)
     Dates: start: 20050801, end: 20051001

REACTIONS (2)
  - COAGULOPATHY [None]
  - PHLEBITIS [None]
